FAERS Safety Report 24300477 (Version 1)
Quarter: 2024Q3

REPORT INFORMATION
  Report Type: Spontaneous
  Country: JP (occurrence: JP)
  Receive Date: 20240910
  Receipt Date: 20240910
  Transmission Date: 20241017
  Serious: Yes (Death)
  Sender: ESKAYEF PHARMACEUTICALS
  Company Number: JP-SKF-000139

PATIENT
  Age: 50 Year
  Sex: Male
  Weight: 107 kg

DRUGS (6)
  1. ZOLPIDEM [Suspect]
     Active Substance: ZOLPIDEM TARTRATE
     Indication: Product used for unknown indication
     Dosage: 20 ZOLPIDEM 10 MG TABLETS
     Route: 065
  2. FLUNITRAZEPAM [Suspect]
     Active Substance: FLUNITRAZEPAM
     Indication: Product used for unknown indication
     Dosage: 10 FLUNITRAZEPAM 2 MG TABLETS
     Route: 065
  3. LOXOPROFEN [Concomitant]
     Active Substance: LOXOPROFEN
     Indication: Product used for unknown indication
     Route: 065
  4. SUVOREXANT [Concomitant]
     Active Substance: SUVOREXANT
     Indication: Product used for unknown indication
     Route: 065
  5. AMLODIPINE [Concomitant]
     Active Substance: AMLODIPINE BESYLATE
     Indication: Product used for unknown indication
     Route: 065
  6. PREGABALIN [Suspect]
     Active Substance: PREGABALIN
     Indication: Product used for unknown indication
     Dosage: 28 PREGABALIN 150 MG TABLETS
     Route: 065

REACTIONS (2)
  - Toxicity to various agents [Fatal]
  - Overdose [Fatal]
